FAERS Safety Report 15485480 (Version 2)
Quarter: 2018Q4

REPORT INFORMATION
  Report Type: Spontaneous
  Country: RO (occurrence: RO)
  Receive Date: 20181010
  Receipt Date: 20181101
  Transmission Date: 20190205
  Serious: Yes (Hospitalization)
  Sender: FDA-Public Use
  Company Number: PHHY2018RO120038

PATIENT
  Age: 24 Year
  Sex: Male

DRUGS (4)
  1. AMOXICILLIN + CLAVULANATE POTASSIUM [Suspect]
     Active Substance: AMOXICILLIN\CLAVULANATE POTASSIUM
     Indication: ANTIBIOTIC THERAPY
     Route: 065
  2. IBUPROFEN. [Suspect]
     Active Substance: IBUPROFEN
     Indication: TOOTH ABSCESS
     Route: 065
  3. AMOXICILLIN + CLAVULANATE POTASSIUM [Suspect]
     Active Substance: AMOXICILLIN\CLAVULANATE POTASSIUM
     Indication: TOOTH ABSCESS
  4. PARACETAMOL [Suspect]
     Active Substance: ACETAMINOPHEN
     Indication: TOOTH ABSCESS
     Route: 065

REACTIONS (4)
  - Staphylococcal infection [Recovered/Resolved]
  - Sepsis [Recovered/Resolved]
  - Escherichia infection [Recovered/Resolved]
  - Toxic epidermal necrolysis [Recovered/Resolved]
